FAERS Safety Report 12328591 (Version 1)
Quarter: 2016Q2

REPORT INFORMATION
  Report Type: Spontaneous
  Country: US (occurrence: US)
  Receive Date: 20160503
  Receipt Date: 20160503
  Transmission Date: 20160815
  Serious: No
  Sender: FDA-Public Use
  Company Number: US-BEH-2015049439

PATIENT
  Sex: Female
  Weight: 66 kg

DRUGS (16)
  1. HIZENTRA [Suspect]
     Active Substance: HUMAN IMMUNOGLOBULIN G
     Indication: IMMUNODEFICIENCY COMMON VARIABLE
     Dosage: 4 GM 20 ML VIAL; DOSING PERIOD 16FEB2015-15MAR2015
     Route: 058
  2. FENOFIBRATE. [Concomitant]
     Active Substance: FENOFIBRATE
  3. QNASL [Concomitant]
     Active Substance: BECLOMETHASONE DIPROPIONATE
  4. EPIPEN [Concomitant]
     Active Substance: EPINEPHRINE
  5. VITAMIN D3 [Concomitant]
     Active Substance: CHOLECALCIFEROL
  6. LIDOCAINE PRILOCAINE [Concomitant]
  7. ASPIRIN. [Concomitant]
     Active Substance: ASPIRIN
  8. OCEAN SPRAY [Concomitant]
  9. LOSARTAN. [Concomitant]
     Active Substance: LOSARTAN
  10. CELEBREX [Concomitant]
     Active Substance: CELECOXIB
  11. LIDOCAINE. [Concomitant]
     Active Substance: LIDOCAINE
  12. QVAR [Concomitant]
     Active Substance: BECLOMETHASONE DIPROPIONATE
  13. TRICOR [Concomitant]
     Active Substance: FENOFIBRATE
  14. MUPIROCIN. [Concomitant]
     Active Substance: MUPIROCIN
  15. OMEPRAZOLE. [Concomitant]
     Active Substance: OMEPRAZOLE
  16. METFORMIN [Concomitant]
     Active Substance: METFORMIN HYDROCHLORIDE

REACTIONS (2)
  - Infusion site pruritus [Unknown]
  - Infusion site erythema [Unknown]
